FAERS Safety Report 10337254 (Version 1)
Quarter: 2014Q3

REPORT INFORMATION
  Report Type: Spontaneous
  Country: IT (occurrence: IT)
  Receive Date: 20140723
  Receipt Date: 20140723
  Transmission Date: 20150326
  Serious: Yes (Hospitalization)
  Sender: FDA-Public Use
  Company Number: IT-TEVA-495180ISR

PATIENT
  Age: 51 Year
  Sex: Female

DRUGS (3)
  1. MEDROL 4 MG [Concomitant]
     Dosage: 8 MILLIGRAM DAILY;
     Route: 048
  2. CARBOPLATINO TEVA [Suspect]
     Active Substance: CARBOPLATIN
     Indication: OVARIAN CANCER METASTATIC
     Dosage: 843.5 MILLIGRAM DAILY;
     Route: 042
     Dates: start: 20140516, end: 20140627
  3. ZIRTEC 10 MG [Concomitant]
     Dosage: 20 MILLIGRAM DAILY;
     Route: 048

REACTIONS (4)
  - Blood pressure increased [Recovered/Resolved]
  - Erythema [Recovered/Resolved]
  - Oxygen saturation decreased [Recovered/Resolved]
  - Bronchial oedema [Recovered/Resolved]

NARRATIVE: CASE EVENT DATE: 20140627
